FAERS Safety Report 17063620 (Version 1)
Quarter: 2019Q4

REPORT INFORMATION
  Report Type: Spontaneous
  Country: US (occurrence: US)
  Receive Date: 20191122
  Receipt Date: 20191122
  Transmission Date: 20200122
  Serious: Yes (Hospitalization)
  Sender: FDA-Public Use
  Company Number: US-BEH-2019109539

PATIENT
  Age: 47 Year
  Sex: Female

DRUGS (14)
  1. HUMATE-P [Suspect]
     Active Substance: HUMAN COAGULATION FACTOR VIII/VON WILLEBRAND FACTOR COMPLEX
     Dosage: 2400 INTERNATIONAL UNIT
     Route: 042
  2. HUMATE-P [Suspect]
     Active Substance: HUMAN COAGULATION FACTOR VIII/VON WILLEBRAND FACTOR COMPLEX
     Dosage: 1200 UNK
     Route: 042
  3. HUMATE-P [Suspect]
     Active Substance: HUMAN COAGULATION FACTOR VIII/VON WILLEBRAND FACTOR COMPLEX
     Dosage: 1200 UNK
     Route: 042
  4. ZOLOFT [Concomitant]
     Active Substance: SERTRALINE HYDROCHLORIDE
  5. NORVASC [Concomitant]
     Active Substance: AMLODIPINE BESYLATE
  6. HUMATE-P [Suspect]
     Active Substance: HUMAN COAGULATION FACTOR VIII/VON WILLEBRAND FACTOR COMPLEX
     Indication: VON WILLEBRAND^S DISEASE
     Dosage: 2400 INTERNATIONAL UNIT, BID FOR 14 DAYS
     Route: 042
     Dates: start: 20191101
  7. HUMATE-P [Suspect]
     Active Substance: HUMAN COAGULATION FACTOR VIII/VON WILLEBRAND FACTOR COMPLEX
     Indication: VON WILLEBRAND^S DISEASE
     Dosage: 2400 INTERNATIONAL UNIT, BID FOR 14 DAYS
     Route: 042
     Dates: start: 20191101
  8. HUMATE-P [Suspect]
     Active Substance: HUMAN COAGULATION FACTOR VIII/VON WILLEBRAND FACTOR COMPLEX
     Dosage: 2400 INTERNATIONAL UNIT
     Route: 042
  9. HUMATE-P [Suspect]
     Active Substance: HUMAN COAGULATION FACTOR VIII/VON WILLEBRAND FACTOR COMPLEX
     Dosage: 1200 UNK
     Route: 042
  10. HUMATE-P [Suspect]
     Active Substance: HUMAN COAGULATION FACTOR VIII/VON WILLEBRAND FACTOR COMPLEX
     Dosage: 2400 INTERNATIONAL UNIT
     Route: 042
  11. HUMATE-P [Suspect]
     Active Substance: HUMAN COAGULATION FACTOR VIII/VON WILLEBRAND FACTOR COMPLEX
     Dosage: 2400 INTERNATIONAL UNIT
     Route: 042
  12. HUMATE-P [Suspect]
     Active Substance: HUMAN COAGULATION FACTOR VIII/VON WILLEBRAND FACTOR COMPLEX
     Dosage: 1200 UNK
     Route: 042
  13. HUMATE-P [Suspect]
     Active Substance: HUMAN COAGULATION FACTOR VIII/VON WILLEBRAND FACTOR COMPLEX
     Dosage: 2400 INTERNATIONAL UNIT
     Route: 042
  14. HUMATE-P [Suspect]
     Active Substance: HUMAN COAGULATION FACTOR VIII/VON WILLEBRAND FACTOR COMPLEX
     Dosage: 2400 INTERNATIONAL UNIT
     Route: 042

REACTIONS (3)
  - Hospitalisation [Not Recovered/Not Resolved]
  - Device issue [Unknown]
  - Product preparation issue [Not Recovered/Not Resolved]

NARRATIVE: CASE EVENT DATE: 20191104
